FAERS Safety Report 24236395 (Version 1)
Quarter: 2024Q3

REPORT INFORMATION
  Report Type: Report from Study
  Country: CA (occurrence: None)
  Receive Date: 20240822
  Receipt Date: 20240822
  Transmission Date: 20241016
  Serious: Yes (Hospitalization, Other)
  Sender: ASTRAZENECA
  Company Number: 2023A052156

PATIENT
  Sex: Female

DRUGS (6)
  1. FASENRA [Suspect]
     Active Substance: BENRALIZUMAB
     Indication: Asthma
     Dosage: 30.0MG UNKNOWN
     Route: 058
     Dates: start: 20220513
  2. VENTOLIN [Concomitant]
     Active Substance: ALBUTEROL SULFATE
     Dosage: 2 INHS BID - PRN
     Route: 055
  3. FLUTICASONE FUROATE [Concomitant]
     Active Substance: FLUTICASONE FUROATE
     Dosage: 2 SPRAYS ONCE DAILY
  4. SPIRIVA RESPIMAT [Concomitant]
     Active Substance: TIOTROPIUM BROMIDE
     Dosage: 2 INHS ONCE DAILY
     Route: 055
  5. ALVESCO [Concomitant]
     Active Substance: CICLESONIDE
     Dosage: 2 INHS ONCE DAILY
     Route: 055
  6. ADVAIR HFA [Concomitant]
     Active Substance: FLUTICASONE PROPIONATE\SALMETEROL XINAFOATE
     Dosage: 2 INHS BID
     Route: 055

REACTIONS (6)
  - Heart rate increased [Unknown]
  - Hyperglycaemia [Recovered/Resolved]
  - Oesophageal disorder [Unknown]
  - Migraine [Unknown]
  - Stress [Unknown]
  - Product dose omission issue [Unknown]
